FAERS Safety Report 9144645 (Version 1)
Quarter: 2013Q1

REPORT INFORMATION
  Report Type: Spontaneous
  Country: ES (occurrence: ES)
  Receive Date: 20130306
  Receipt Date: 20130306
  Transmission Date: 20140127
  Serious: Yes (Other)
  Sender: FDA-Public Use
  Company Number: ES-ROCHE-1194947

PATIENT
  Age: 54 Year
  Sex: Male

DRUGS (3)
  1. RIVOTRIL [Suspect]
     Indication: DEPRESSION
     Route: 048
     Dates: start: 2009
  2. PLENUR [Suspect]
     Indication: PRODUCT USED FOR UNKNOWN INDICATION
     Route: 048
     Dates: start: 2009
  3. ACENOCUMAROL [Suspect]
     Indication: THROMBOSIS
     Route: 048
     Dates: start: 2009

REACTIONS (4)
  - Tooth disorder [Unknown]
  - Tooth loss [Unknown]
  - Onychoclasis [Unknown]
  - Dental caries [Unknown]
